FAERS Safety Report 6851680-2 (Version None)
Quarter: 2010Q3

REPORT INFORMATION
  Report Type: 
  Country: None (occurrence: None)
  Receive Date: 20100717
  Receipt Date: 20080123
  Transmission Date: 20110219
  Serious: No
  Sender: FDA-Public Use
  Company Number: US-PFIZER INC-2008006820

PATIENT
  Sex: Female
  Weight: 95.3 kg

DRUGS (4)
  1. CHANTIX [Suspect]
     Indication: SMOKING CESSATION THERAPY
     Dates: start: 20080120
  2. DIOVANE [Concomitant]
     Indication: HYPERTENSION
  3. VENLAFAXINE HYDROCHLORIDE [Concomitant]
  4. MONTELUKAST SODIUM [Concomitant]

REACTIONS (1)
  - NIGHTMARE [None]
